FAERS Safety Report 7573897-4 (Version None)
Quarter: 2011Q2

REPORT INFORMATION
  Report Type: 
  Country: None (occurrence: None)
  Receive Date: 20110627
  Receipt Date: 20110617
  Transmission Date: 20111010
  Serious: Yes (Other)
  Sender: FDA-Public Use
  Company Number: B0712279A

PATIENT
  Sex: Female

DRUGS (7)
  1. REQUIP [Suspect]
     Indication: PARKINSON'S DISEASE
     Dosage: 3MG PER DAY
     Route: 048
     Dates: start: 20110121, end: 20110326
  2. GASMOTIN [Suspect]
     Indication: GASTRITIS
     Dosage: 15MG PER DAY
     Route: 048
     Dates: start: 20100827, end: 20110326
  3. OMEPRAZOLE [Concomitant]
     Dosage: 10MG PER DAY
     Route: 048
     Dates: start: 20091005
  4. RISEDRONATE SODIUM [Concomitant]
     Indication: OSTEOPOROSIS
     Route: 048
     Dates: start: 20091005
  5. CARBIDOPA AND LEVODOPA [Concomitant]
     Indication: PARKINSON'S DISEASE
     Dosage: 300MG PER DAY
     Route: 048
     Dates: start: 20090307
  6. MAGNESIUM SULFATE [Concomitant]
     Indication: CONSTIPATION
     Dosage: 1980MG PER DAY
     Route: 048
     Dates: start: 20090301
  7. UNKNOWN DRUG [Concomitant]
     Indication: HYPERTENSION
     Route: 048
     Dates: start: 20100924

REACTIONS (1)
  - HEPATIC FUNCTION ABNORMAL [None]
